FAERS Safety Report 6867589-4 (Version None)
Quarter: 2010Q3

REPORT INFORMATION
  Report Type: 
  Country: None (occurrence: None)
  Receive Date: 20100722
  Receipt Date: 20090613
  Transmission Date: 20110219
  Serious: No
  Sender: FDA-Public Use
  Company Number: US-BAUSCH-2009BL003024

PATIENT
  Age: 59 Year
  Sex: Female

DRUGS (2)
  1. OPCON-A [Suspect]
     Indication: EYE ALLERGY
     Route: 047
     Dates: start: 20090606, end: 20090606
  2. OPCON-A [Suspect]
     Route: 047
     Dates: start: 20090613, end: 20090613

REACTIONS (4)
  - DISCOMFORT [None]
  - MYDRIASIS [None]
  - PHOTOPHOBIA [None]
  - VISION BLURRED [None]
